FAERS Safety Report 21577895 (Version 1)
Quarter: 2022Q4

REPORT INFORMATION
  Report Type: Report from Study
  Country: CA (occurrence: CA)
  Receive Date: 20221110
  Receipt Date: 20221110
  Transmission Date: 20230113
  Serious: Yes (Death, Hospitalization)
  Sender: FDA-Public Use
  Company Number: CA-ABBVIE-4193613

PATIENT
  Sex: Male
  Weight: 56 kg

DRUGS (4)
  1. VENCLEXTA [Suspect]
     Active Substance: VENETOCLAX
     Indication: Acute myeloid leukaemia
     Route: 048
     Dates: start: 20211206, end: 20220729
  2. VENCLEXTA [Suspect]
     Active Substance: VENETOCLAX
     Indication: Acute myeloid leukaemia
  3. METOPROLOL [Concomitant]
     Active Substance: METOPROLOL
     Indication: Coronary artery disease
     Route: 048
  4. ATORVASTATIN [Concomitant]
     Active Substance: ATORVASTATIN
     Indication: Hyperlipidaemia
     Route: 048

REACTIONS (4)
  - Myelodysplastic syndrome [Fatal]
  - Acute myeloid leukaemia [Fatal]
  - Hospitalisation [Fatal]
  - Unevaluable event [Unknown]
